FAERS Safety Report 8837498 (Version 1)
Quarter: 2012Q4

REPORT INFORMATION
  Report Type: 
  Country: US (occurrence: US)
  Receive Date: 20121012
  Receipt Date: 20121012
  Transmission Date: 20130627
  Serious: No
  Sender: FDA-Public Use
  Company Number: US-PFIZER INC-2012249957

PATIENT
  Age: 8 Year
  Sex: Male

DRUGS (7)
  1. GENOTROPIN [Suspect]
     Indication: BODY HEIGHT BELOW NORMAL
     Dosage: 2.4 mg, 1x/day
  2. GENOTROPIN [Suspect]
     Dosage: 2.2 mg, 1x/day
  3. HYDROCORTISONE [Concomitant]
     Indication: OPTIC NERVE HYPOPLASIA
     Dosage: 5 mg, 3x/day
  4. HYDROCORTISONE [Concomitant]
     Indication: HYPOPITUITARISM
  5. METFORMIN [Concomitant]
     Indication: GLUCOSE TOLERANCE IMPAIRED
     Dosage: UNK
  6. ATENOLOL [Concomitant]
     Indication: CARDIAC DISORDER
     Dosage: UNK
  7. LEVOTHYROXINE [Concomitant]
     Indication: THYROID DISORDER
     Dosage: 75 ug, daily

REACTIONS (1)
  - Headache [Recovering/Resolving]
